FAERS Safety Report 10649775 (Version 2)
Quarter: 2015Q1

REPORT INFORMATION
  Report Type: Spontaneous
  Country: US (occurrence: US)
  Receive Date: 20141212
  Receipt Date: 20150116
  Transmission Date: 20150720
  Serious: Yes (Hospitalization)
  Sender: FDA-Public Use
  Company Number: US-BAYER-2014-183268

PATIENT
  Age: 24 Year
  Sex: Female

DRUGS (3)
  1. MIRENA [Suspect]
     Active Substance: LEVONORGESTREL
     Indication: CONTRACEPTION
     Dosage: 20 MCG/24HR, CONT
     Route: 015
     Dates: start: 20101202, end: 20130523
  2. ADDERALL [Concomitant]
     Active Substance: AMPHETAMINE ASPARTATE\AMPHETAMINE SULFATE\DEXTROAMPHETAMINE SACCHARATE\DEXTROAMPHETAMINE SULFATE
  3. HYDROCODONE [Concomitant]
     Active Substance: HYDROCODONE

REACTIONS (4)
  - Pain [None]
  - Emotional distress [None]
  - Injury [None]
  - Uterine perforation [None]

NARRATIVE: CASE EVENT DATE: 20130523
